FAERS Safety Report 7849996-6 (Version None)
Quarter: 2011Q4

REPORT INFORMATION
  Report Type: 
  Country: None (occurrence: None)
  Receive Date: 20111026
  Receipt Date: 20111021
  Transmission Date: 20120403
  Serious: Yes (Life-Threatening, Hospitalization, Other)
  Sender: FDA-Public Use
  Company Number: BR-ASTRAZENECA-2011SE63951

PATIENT
  Age: 63 Year
  Sex: Female
  Weight: 82 kg

DRUGS (10)
  1. METOPROLOL SUCCINATE [Suspect]
     Route: 048
     Dates: start: 20100101
  2. ISOSORBIDE MONONITRATE [Concomitant]
     Route: 048
     Dates: start: 20080101, end: 20100101
  3. AMLODIPINO [Concomitant]
     Route: 048
     Dates: start: 20081201
  4. ATENOLOL [Suspect]
     Route: 048
     Dates: start: 20080101
  5. CARVEDILOL [Concomitant]
     Route: 048
     Dates: start: 20081201
  6. PLAVIX [Concomitant]
     Route: 048
     Dates: start: 20080101
  7. CRESTOR [Suspect]
     Route: 048
     Dates: start: 20080101, end: 20100101
  8. CRESTOR [Suspect]
     Route: 048
     Dates: start: 20100101
  9. RAMIPRIL [Concomitant]
     Route: 048
     Dates: start: 20080101
  10. ASPIRIN [Concomitant]
     Route: 048
     Dates: start: 20080101, end: 20100101

REACTIONS (16)
  - HEPATIC STEATOSIS [None]
  - HYPERTRIGLYCERIDAEMIA [None]
  - HYPERTENSION [None]
  - DYSPNOEA [None]
  - WEIGHT INCREASED [None]
  - DEPRESSION [None]
  - VENTRICULAR FIBRILLATION [None]
  - HIGH DENSITY LIPOPROTEIN DECREASED [None]
  - MICROALBUMINURIA [None]
  - FATIGUE [None]
  - CHEST PAIN [None]
  - BLOOD GLUCOSE INCREASED [None]
  - ERYSIPELAS [None]
  - PAIN IN EXTREMITY [None]
  - ARTERIOSCLEROSIS [None]
  - HEPATOMEGALY [None]
